FAERS Safety Report 7332236-4 (Version None)
Quarter: 2011Q1

REPORT INFORMATION
  Report Type: 
  Country: None (occurrence: None)
  Receive Date: 20110304
  Receipt Date: 20110221
  Transmission Date: 20110831
  Serious: Yes (Other)
  Sender: FDA-Public Use
  Company Number: US-JNJFOC-2010020915

PATIENT
  Age: 30 Year
  Sex: Female
  Weight: 54.4 kg

DRUGS (2)
  1. BENGAY GREASELESS [Suspect]
     Indication: PAIN
     Dosage: DAILY DOSE TEXT: NICKLE-SIZED AMOUNT 4X A DAY
     Route: 061
     Dates: end: 20100826
  2. TRAMADOL HCL [Concomitant]
     Indication: BACK PAIN
     Dosage: DAILY DOSE TEXT: 4 TABLETS ONCE A DAY
     Route: 048

REACTIONS (3)
  - APPLICATION SITE VESICLES [None]
  - CHEMICAL INJURY [None]
  - SCAR [None]
